FAERS Safety Report 9788244 (Version 2)
Quarter: 2013Q4

REPORT INFORMATION
  Report Type: Spontaneous
  Country: US (occurrence: US)
  Receive Date: 20131230
  Receipt Date: 20131230
  Transmission Date: 20140711
  Serious: Yes (Hospitalization, Other)
  Sender: FDA-Public Use
  Company Number: US-PFIZER INC-2013355375

PATIENT
  Sex: Female

DRUGS (1)
  1. GLIPIZIDE [Suspect]
     Dosage: 10 MG, 2X/DAY

REACTIONS (4)
  - Malaise [Unknown]
  - Blood glucose increased [Unknown]
  - Depressed mood [Unknown]
  - Hypertension [Unknown]
